FAERS Safety Report 15552123 (Version 4)
Quarter: 2023Q2

REPORT INFORMATION
  Report Type: Spontaneous
  Country: FR (occurrence: FR)
  Receive Date: 20181025
  Receipt Date: 20230416
  Transmission Date: 20230722
  Serious: Yes (Hospitalization, Other)
  Sender: FDA-Public Use
  Company Number: None

PATIENT
  Age: 78 Year
  Sex: Male
  Weight: 70 kg

DRUGS (16)
  1. ACETAMINOPHEN [Suspect]
     Active Substance: ACETAMINOPHEN
     Indication: Toxicity to various agents
     Dosage: 32 DOSAGE FORM
     Route: 048
     Dates: start: 20191225, end: 20191225
  2. AMOXICILLIN TRIHYDRATE [Suspect]
     Active Substance: AMOXICILLIN
     Indication: Tonsillitis
     Dosage: UNK
     Route: 048
     Dates: start: 20160927, end: 20161002
  3. TAMSULOSIN [Suspect]
     Active Substance: TAMSULOSIN
     Indication: Tonsillitis
     Dosage: UNK
     Route: 048
     Dates: start: 20160927
  4. TAMSULOSIN [Suspect]
     Active Substance: TAMSULOSIN
     Dosage: UNK
     Route: 048
     Dates: start: 20160929, end: 20161003
  5. AMBROXOL HYDROCHLORIDE [Suspect]
     Active Substance: AMBROXOL HYDROCHLORIDE
     Indication: Tonsillitis
     Dosage: UNK
     Route: 048
     Dates: start: 20160927, end: 20161003
  6. ACETYLCYSTEINE\BENZALKONIUM CHLORIDE\TUAMINOHEPTANE SULFATE [Suspect]
     Active Substance: ACETYLCYSTEINE\BENZALKONIUM CHLORIDE\TUAMINOHEPTANE SULFATE
     Indication: Tonsillitis
     Dosage: UNK
     Route: 045
     Dates: start: 20160927
  7. ACETYLCYSTEINE\BENZALKONIUM CHLORIDE\TUAMINOHEPTANE SULFATE [Suspect]
     Active Substance: ACETYLCYSTEINE\BENZALKONIUM CHLORIDE\TUAMINOHEPTANE SULFATE
     Dosage: (NASAL SPRAY AND OROMUCOSAL SOLUTION  )
     Route: 045
     Dates: start: 20160929, end: 20161003
  8. FLOMAX [Suspect]
     Active Substance: TAMSULOSIN HYDROCHLORIDE
     Indication: Tonsillitis
     Dosage: UNK
     Route: 065
  9. MAXILASE [Suspect]
     Active Substance: PANCRELIPASE
     Indication: Tonsillitis
     Dosage: UNK
     Route: 048
     Dates: start: 20160927, end: 20161003
  10. INSPRA [Concomitant]
     Active Substance: EPLERENONE
     Indication: Product used for unknown indication
     Dosage: 25 MG, QD
     Route: 065
  11. SYMBICORT [Concomitant]
     Active Substance: BUDESONIDE\FORMOTEROL FUMARATE DIHYDRATE
     Indication: Product used for unknown indication
     Dosage: 2 DOSAGE FORM, QD 1 PUFF(S), BID
  12. PERINDOPRIL [Concomitant]
     Active Substance: PERINDOPRIL
     Indication: Product used for unknown indication
     Dosage: 1 DOSAGE FORM, QD (1-0-0) DISCONTINUED SINCE 15 DAYS BECAUSE OF HYPOTENSION IN THE EVENINGS)
     Route: 065
  13. IXPRIM [Concomitant]
     Active Substance: ACETAMINOPHEN\TRAMADOL HYDROCHLORIDE
     Indication: Product used for unknown indication
     Dosage: UNK, PRN 37.5/325 IF REQUIRED
     Route: 065
  14. AMIODARONE [Concomitant]
     Active Substance: AMIODARONE
     Indication: Product used for unknown indication
     Dosage: 100 MG, QD 1/2 TABLET DAILY
     Route: 065
  15. SIMVASTATIN [Concomitant]
     Active Substance: SIMVASTATIN
     Indication: Product used for unknown indication
     Dosage: 20 MG, QD
     Route: 065
  16. PREVISCAN [Concomitant]
     Indication: Product used for unknown indication
     Dosage: (0-0-1/2) AND (0-0-3/4) IN ALTERNATION
     Route: 065

REACTIONS (16)
  - Hypotension [Unknown]
  - Chest discomfort [Unknown]
  - Odynophagia [Unknown]
  - Blood pressure systolic increased [Unknown]
  - Prostatitis [Unknown]
  - Paraesthesia [Unknown]
  - Headache [Unknown]
  - Rash maculo-papular [Not Recovered/Not Resolved]
  - Pruritus [Not Recovered/Not Resolved]
  - Product use in unapproved indication [Unknown]
  - Analgesic drug level increased [Recovered/Resolved]
  - Psychomotor skills impaired [Recovered/Resolved]
  - Hepatic cytolysis [Not Recovered/Not Resolved]
  - Vomiting [Recovered/Resolved]
  - Nausea [Recovered/Resolved]
  - Headache [Recovered/Resolved]

NARRATIVE: CASE EVENT DATE: 20160929
